FAERS Safety Report 8095448-0 (Version None)
Quarter: 2012Q1

REPORT INFORMATION
  Report Type: 
  Country: None (occurrence: None)
  Receive Date: 20120129
  Receipt Date: 20111216
  Transmission Date: 20120608
  Serious: No
  Sender: FDA-Public Use
  Company Number: US-ABBOTT-11P-163-0884221-00

PATIENT
  Sex: Female
  Weight: 69.462 kg

DRUGS (2)
  1. MEDROL [Concomitant]
     Indication: MIGRAINE
  2. HUMIRA [Suspect]
     Indication: ANKYLOSING SPONDYLITIS
     Dates: start: 20110901

REACTIONS (3)
  - ALOPECIA [None]
  - MADAROSIS [None]
  - INJECTION SITE PAIN [None]
